FAERS Safety Report 18187542 (Version 1)
Quarter: 2020Q3

REPORT INFORMATION
  Report Type: Spontaneous
  Country: US (occurrence: US)
  Receive Date: 20200824
  Receipt Date: 20200824
  Transmission Date: 20201103
  Serious: No
  Sender: FDA-Public Use
  Company Number: US-SA-2020SA221680

PATIENT

DRUGS (1)
  1. NASACORT [Suspect]
     Active Substance: TRIAMCINOLONE ACETONIDE
     Dosage: UNK
     Route: 065
     Dates: start: 202006

REACTIONS (6)
  - Glossodynia [Unknown]
  - Skin fissures [Unknown]
  - Skin haemorrhage [Unknown]
  - Urticaria [Unknown]
  - Tongue discolouration [Unknown]
  - Off label use [Unknown]
